FAERS Safety Report 6602422-7 (Version None)
Quarter: 2010Q1

REPORT INFORMATION
  Report Type: 
  Country: None (occurrence: None)
  Receive Date: 20100225
  Receipt Date: 20100218
  Transmission Date: 20100710
  Serious: Yes (Hospitalization)
  Sender: FDA-Public Use
  Company Number: PHHO2010DE02771

PATIENT
  Sex: Male
  Weight: 90 kg

DRUGS (5)
  1. CERTICAN [Suspect]
     Indication: RENAL TRANSPLANT
     Dosage: 0.75 MG, BID
     Route: 048
  2. CERTICAN [Suspect]
     Dosage: 1 MG, TID
     Route: 048
  3. SIMULECT [Suspect]
     Indication: RENAL TRANSPLANT
     Route: 048
  4. MYFORTIC [Suspect]
     Indication: RENAL TRANSPLANT
     Dosage: 360 MG, TID
     Route: 048
  5. MYFORTIC [Suspect]
     Dosage: 360 MG, BID
     Route: 048

REACTIONS (4)
  - ANAEMIA [None]
  - BLOOD CREATININE INCREASED [None]
  - LEUKOPENIA [None]
  - TRANSPLANT REJECTION [None]
